FAERS Safety Report 7445868-X (Version None)
Quarter: 2011Q2

REPORT INFORMATION
  Report Type: 
  Country: None (occurrence: None)
  Receive Date: 20110410
  Receipt Date: 20110407
  Transmission Date: 20111010
  Serious: Yes (Hospitalization, Other)
  Sender: FDA-Public Use
  Company Number: 201110385

PATIENT
  Sex: Male

DRUGS (2)
  1. LIORESAL [Suspect]
     Indication: MUSCLE SPASTICITY
     Dosage: 550 MCG, DAILY, INTRATHECAL
     Route: 037
  2. ORAL BACLOFEN [Concomitant]

REACTIONS (3)
  - INCISION SITE INFECTION [None]
  - IMPLANT SITE EFFUSION [None]
  - IMPLANT SITE HAEMORRHAGE [None]
